FAERS Safety Report 16763709 (Version 1)
Quarter: 2019Q3

REPORT INFORMATION
  Report Type: Spontaneous
  Country: US (occurrence: US)
  Receive Date: 20190902
  Receipt Date: 20190902
  Transmission Date: 20191005
  Serious: Yes (Other)
  Sender: FDA-Public Use
  Company Number: US-PFIZER INC-2019109271

PATIENT
  Age: 70 Year
  Sex: Female
  Weight: 106.1 kg

DRUGS (2)
  1. LYRICA [Suspect]
     Active Substance: PREGABALIN
     Dosage: 400 MG, DAILY (100MG IN MORNING AND AT NOON, 200MG AT BEDTIME)
     Route: 048
  2. LYRICA [Suspect]
     Active Substance: PREGABALIN
     Indication: NEUROPATHY PERIPHERAL
     Dosage: 100 MG, AS NEEDED (1 IN AM AND AT LUNCH 2HS/3HS)

REACTIONS (14)
  - Arthralgia [Unknown]
  - Hypoaesthesia [Unknown]
  - Blood glucose decreased [Unknown]
  - Muscle spasms [Unknown]
  - Back pain [Unknown]
  - Sensitivity to weather change [Unknown]
  - Intervertebral disc degeneration [Unknown]
  - Musculoskeletal pain [Unknown]
  - Off label use [Unknown]
  - Pain in extremity [Recovered/Resolved]
  - Arthritis [Unknown]
  - Product use issue [Unknown]
  - Gait inability [Recovered/Resolved]
  - Peripheral swelling [Recovered/Resolved]
